FAERS Safety Report 7685879-2 (Version None)
Quarter: 2011Q3

REPORT INFORMATION
  Report Type: 
  Country: None (occurrence: None)
  Receive Date: 20110815
  Receipt Date: 20110815
  Transmission Date: 20111222
  Serious: Yes (Other)
  Sender: FDA-Public Use
  Company Number: None

PATIENT
  Sex: Female
  Weight: 80.7403 kg

DRUGS (1)
  1. CLINDAMYCIN [Suspect]
     Indication: SINUSITIS
     Dosage: 150 MG EVERY 6 HRS MOUTH
     Route: 048
     Dates: start: 20110324, end: 20110329

REACTIONS (6)
  - MACULE [None]
  - PRURITUS [None]
  - SCAB [None]
  - RASH ERYTHEMATOUS [None]
  - EXCORIATION [None]
  - SKIN EROSION [None]
